FAERS Safety Report 9136204 (Version 1)
Quarter: 2013Q1

REPORT INFORMATION
  Report Type: Spontaneous
  Country: US (occurrence: US)
  Receive Date: 20130304
  Receipt Date: 20130304
  Transmission Date: 20140127
  Serious: Yes (Other)
  Sender: FDA-Public Use
  Company Number: US-GLAXOSMITHKLINE-A1014417A

PATIENT
  Sex: Female

DRUGS (2)
  1. ADVAIR [Suspect]
     Indication: PRODUCT USED FOR UNKNOWN INDICATION
     Route: 055
  2. VENTOLIN HFA [Suspect]
     Indication: PRODUCT USED FOR UNKNOWN INDICATION
     Dosage: 90MCG UNKNOWN
     Route: 055

REACTIONS (2)
  - Hypoacusis [Unknown]
  - Ear infection [Unknown]
